FAERS Safety Report 19943452 (Version 1)
Quarter: 2021Q4

REPORT INFORMATION
  Report Type: Spontaneous
  Country: US (occurrence: US)
  Receive Date: 20211008
  Receipt Date: 20211008
  Transmission Date: 20220304
  Serious: No
  Sender: FDA-Public Use
  Company Number: None

PATIENT
  Age: 38 Year
  Sex: Female
  Weight: 51.75 kg

DRUGS (6)
  1. ORILISSA [Suspect]
     Active Substance: ELAGOLIX SODIUM
     Indication: Endometriosis
     Dosage: ?          QUANTITY:7 TABLET(S);
     Route: 048
     Dates: start: 20210908
  2. IRON [Concomitant]
     Active Substance: IRON
  3. BUTTERBUR [Concomitant]
  4. CARDIZEM [Concomitant]
     Active Substance: DILTIAZEM HYDROCHLORIDE
  5. VITAMINS [Concomitant]
     Active Substance: VITAMINS
  6. BIOTIN [Concomitant]
     Active Substance: BIOTIN

REACTIONS (1)
  - Diarrhoea [None]

NARRATIVE: CASE EVENT DATE: 20211007
